FAERS Safety Report 16590416 (Version 1)
Quarter: 2019Q3

REPORT INFORMATION
  Report Type: Spontaneous
  Country: US (occurrence: US)
  Receive Date: 20190718
  Receipt Date: 20190718
  Transmission Date: 20191004
  Serious: No
  Sender: FDA-Public Use
  Company Number: US-TEVA-2019-US-1080815

PATIENT

DRUGS (1)
  1. CLONAZEPAM ODT [Suspect]
     Active Substance: CLONAZEPAM
     Indication: ANXIETY
     Dosage: ORAL DISINTEGRATED TABLET: ROUND, YELLOW, SCORED/R/34
     Route: 065

REACTIONS (1)
  - Drug ineffective [Unknown]
